FAERS Safety Report 14528051 (Version 4)
Quarter: 2018Q1

REPORT INFORMATION
  Report Type: Spontaneous
  Country: DE (occurrence: DE)
  Receive Date: 20180213
  Receipt Date: 20180306
  Transmission Date: 20180509
  Serious: Yes (Other)
  Sender: FDA-Public Use
  Company Number: DE-JNJFOC-20180207115

PATIENT
  Age: 7 Decade
  Sex: Female

DRUGS (2)
  1. REGAINE FOAM 5% 2X60ML [Suspect]
     Active Substance: MINOXIDIL
     Route: 061
  2. REGAINE FOAM 5% 2X60ML [Suspect]
     Active Substance: MINOXIDIL
     Indication: ALOPECIA
     Dosage: 2CM HIGH FIRST SHE USED IT ONCE A DAY, AFTER SIDE EFFECTS OCCURRED SHE SWITCHED TO ONCE EVERY 2DAYS
     Route: 061
     Dates: start: 20171015, end: 20180115

REACTIONS (13)
  - Breast pain [Recovered/Resolved]
  - Discomfort [Recovered/Resolved]
  - Swelling face [Recovered/Resolved]
  - Bone pain [Recovered/Resolved]
  - Headache [Recovered/Resolved]
  - Angina pectoris [Recovered/Resolved]
  - Breast enlargement [Recovered/Resolved]
  - Chest pain [Recovered/Resolved]
  - Weight increased [Recovered/Resolved]
  - Conjunctivitis [Recovered/Resolved]
  - Pulmonary pain [Recovered/Resolved]
  - Oedema peripheral [Recovered/Resolved]
  - Off label use [Unknown]

NARRATIVE: CASE EVENT DATE: 20171015
